FAERS Safety Report 7983261-1 (Version None)
Quarter: 2011Q4

REPORT INFORMATION
  Report Type: 
  Country: None (occurrence: None)
  Receive Date: 20111215
  Receipt Date: 20111206
  Transmission Date: 20120403
  Serious: Yes (Other)
  Sender: FDA-Public Use
  Company Number: US-BAYER-2011-120418

PATIENT
  Age: 73 Year
  Sex: Female
  Weight: 77 kg

DRUGS (2)
  1. NAPROXEN (ALEVE) [Suspect]
     Indication: ARTHRITIS
     Dosage: DAILY DOSE 1 DF
     Route: 048
     Dates: start: 20111204, end: 20111205
  2. SUDAFED 12 HOUR [Concomitant]

REACTIONS (3)
  - MALAISE [None]
  - FEELING ABNORMAL [None]
  - HEAD DISCOMFORT [None]
